FAERS Safety Report 7458591-2 (Version None)
Quarter: 2011Q2

REPORT INFORMATION
  Report Type: 
  Country: None (occurrence: None)
  Receive Date: 20110504
  Receipt Date: 20110426
  Transmission Date: 20111010
  Serious: Yes (Other)
  Sender: FDA-Public Use
  Company Number: JP-PFIZER INC-2011089153

PATIENT
  Age: 36 Year
  Sex: Female

DRUGS (1)
  1. NAFARELIN ACETATE [Suspect]
     Indication: ENDOMETRIOSIS
     Dosage: 400 UG, 1X/DAY
     Dates: start: 20091001, end: 20100201

REACTIONS (1)
  - HYPERTHYROIDISM [None]
